FAERS Safety Report 11593297 (Version 1)
Quarter: 2015Q4

REPORT INFORMATION
  Report Type: Spontaneous
  Country: KR (occurrence: KR)
  Receive Date: 20151005
  Receipt Date: 20151005
  Transmission Date: 20160304
  Serious: Yes (Other)
  Sender: FDA-Public Use
  Company Number: KR-CIPLA LTD.-2015KR07684

PATIENT

DRUGS (3)
  1. VALACYCLOVIR HYDROCHLORIDE. [Suspect]
     Active Substance: VALACYCLOVIR HYDROCHLORIDE
     Indication: HERPES SIMPLEX
     Dosage: DILUTED AT 1% WITH SALINE, PLUS A HISTAMINE CONTROL
     Route: 048
  2. ZOVIRAX [Suspect]
     Active Substance: ACYCLOVIR
     Indication: HERPES SIMPLEX
     Dosage: DILUTED AT 1% WITH SALINE, PLUS A HISTAMINE CONTROL
     Route: 065
  3. FAMCICLOVIR. [Suspect]
     Active Substance: FAMCICLOVIR
     Indication: HERPES SIMPLEX
     Dosage: DILUTED AT 1% WITH SALINE, PLUS A HISTAMINE CONTROL
     Route: 065

REACTIONS (2)
  - Drug eruption [Unknown]
  - Similar reaction on previous exposure to drug [None]
